FAERS Safety Report 5754135-1 (Version None)
Quarter: 2008Q2

REPORT INFORMATION
  Report Type: 
  Country: None (occurrence: None)
  Receive Date: 20080528
  Receipt Date: 20080528
  Transmission Date: 20081010
  Serious: Yes (Other)
  Sender: FDA-Public Use
  Company Number: None

PATIENT
  Age: 23 Year
  Sex: Male

DRUGS (1)
  1. CHANTIX [Suspect]
     Dosage: STARTING PACK QD PO
     Route: 048
     Dates: start: 20071015

REACTIONS (1)
  - SUICIDAL BEHAVIOUR [None]
